FAERS Safety Report 4977565-4 (Version None)
Quarter: 2006Q2

REPORT INFORMATION
  Report Type: 
  Country: None (occurrence: None)
  Receive Date: 20060414
  Receipt Date: 20060403
  Transmission Date: 20061013
  Serious: Yes (Disabling)
  Sender: FDA-Public Use
  Company Number: 2006-140854-NL

PATIENT
  Age: 31 Year
  Sex: Male

DRUGS (3)
  1. MIRTAZAPINE [Suspect]
     Indication: DEPRESSION
     Dosage: 90 MG QD ORAL
     Route: 048
     Dates: start: 20011015
  2. VALPROATE SODIUM [Suspect]
     Indication: AFFECTIVE DISORDER
     Dosage: ORAL
  3. FLUVOXAMINE MALEATE [Suspect]
     Dosage: 300 MG QD ORAL
     Route: 048
     Dates: start: 20000515, end: 20010115

REACTIONS (2)
  - DEPRESSION [None]
  - SPERM COUNT DECREASED [None]
